FAERS Safety Report 8336807-8 (Version None)
Quarter: 2012Q2

REPORT INFORMATION
  Report Type: 
  Country: None (occurrence: None)
  Receive Date: 20120504
  Receipt Date: 20120424
  Transmission Date: 20120825
  Serious: Yes (Hospitalization)
  Sender: FDA-Public Use
  Company Number: US-SANOFI-AVENTIS-2012SA028936

PATIENT
  Age: 70 Year
  Sex: Female

DRUGS (4)
  1. LANTUS [Suspect]
     Indication: TYPE 2 DIABETES MELLITUS
     Dosage: DOSE:25 UNIT(S)
     Route: 058
  2. ALL OTHER THERAPEUTIC PRODUCTS [Concomitant]
  3. LANTUS [Suspect]
     Dosage: ADJUSTS HER DOSE AND THE TIME ACCORDING TO HER BLOOD SUGAR LEVELS
     Route: 058
  4. SOLOSTAR [Suspect]
     Indication: TYPE 2 DIABETES MELLITUS

REACTIONS (3)
  - ARTHRITIS [None]
  - CARDIAC DISORDER [None]
  - PAIN IN EXTREMITY [None]
